FAERS Safety Report 20906484 (Version 10)
Quarter: 2024Q1

REPORT INFORMATION
  Report Type: Spontaneous
  Country: US (occurrence: US)
  Receive Date: 20220602
  Receipt Date: 20240109
  Transmission Date: 20240410
  Serious: No
  Sender: FDA-Public Use
  Company Number: US-PFIZER INC-202200784707

PATIENT
  Age: 79 Year
  Sex: Female

DRUGS (4)
  1. IBRANCE [Suspect]
     Active Substance: PALBOCICLIB
     Indication: Breast cancer metastatic
     Dosage: 3 WEEKS ON, 1 WEEK OFF, BUT ITS BEEN 2 WEEKS ON AND 2 WEEKS OFF FOR A WHILE
  2. IBRANCE [Suspect]
     Active Substance: PALBOCICLIB
     Dosage: DAILY 2 WEEKS ON AND 2 WEEKS OFF/ 14 DAYS ON, THEN 14 DAYS OFF; EACH 28 DAY CYCLE
     Route: 048
  3. IBRANCE [Suspect]
     Active Substance: PALBOCICLIB
     Dosage: DAILY 2 WEEKS ON AND 2 WEEKS OFF/ 14 DAYS ON, THEN 14 DAYS OFF; EACH 28 DAY CYCLE
     Route: 048
  4. IBRANCE [Suspect]
     Active Substance: PALBOCICLIB
     Dosage: DAILY 2 WEEKS ON AND 2 WEEKS OFF/ 14 DAYS ON, THEN 14 DAYS OFF; EACH 28 DAY CYCLE
     Route: 048

REACTIONS (5)
  - Oropharyngeal discomfort [Unknown]
  - Asthenia [Unknown]
  - Fatigue [Unknown]
  - Off label use [Unknown]
  - Product use issue [Unknown]
